FAERS Safety Report 23411415 (Version 2)
Quarter: 2025Q1

REPORT INFORMATION
  Report Type: Spontaneous
  Country: US (occurrence: US)
  Receive Date: 20240117
  Receipt Date: 20250115
  Transmission Date: 20250408
  Serious: No
  Sender: SK LIFE SCIENCE
  Company Number: US-SK LIFE SCIENCE, INC-SKPVG-2023-000547

PATIENT

DRUGS (16)
  1. XCOPRI [Suspect]
     Active Substance: CENOBAMATE
     Indication: Epilepsy
     Route: 048
     Dates: start: 20221122
  2. XCOPRI [Suspect]
     Active Substance: CENOBAMATE
     Indication: Seizure cluster
     Dosage: 200 MILLIGRAM, ONCE DAILY AT 5 30 PM
     Route: 048
  3. XCOPRI [Suspect]
     Active Substance: CENOBAMATE
     Indication: Seizure
     Dosage: 200 MILLIGRAM, ONCE DAILY
     Route: 048
  4. XCOPRI [Suspect]
     Active Substance: CENOBAMATE
     Dosage: 225 MG ONCE A DAY (25 MILLIGRAM, IN THE AFTERNOON AND 200MG BY 6:00 PM IN THE EVENING).
     Route: 048
  5. XCOPRI [Suspect]
     Active Substance: CENOBAMATE
     Dosage: 225 MG ONCE A DAY (25 MILLIGRAM, IN THE AFTERNOON AND 200MG BY 6:00 PM IN THE EVENING).
     Route: 048
  6. XCOPRI [Suspect]
     Active Substance: CENOBAMATE
     Dosage: 250MG TOTAL DAILY DOSE (125 MG TWICE DAILY FROM 100MG BOTTLE AND 25MG BOTTLE)
     Route: 048
     Dates: start: 202309
  7. XCOPRI [Suspect]
     Active Substance: CENOBAMATE
     Dosage: 250MG TOTAL DAILY DOSE (125 MG TWICE DAILY FROM 100MG BOTTLE AND 25MG BOTTLE)
     Route: 048
     Dates: start: 202309
  8. XCOPRI [Suspect]
     Active Substance: CENOBAMATE
     Dosage: 250MG TOTAL DAILY DOSE (125 MG TWICE DAILY FROM 100MG BOTTLE AND 25MG BOTTLE)
     Route: 048
     Dates: start: 202309
  9. XCOPRI [Suspect]
     Active Substance: CENOBAMATE
     Dosage: 250MG TOTAL DAILY DOSE (125 MG TWICE DAILY FROM 100MG BOTTLE AND 25MG BOTTLE)
     Route: 048
     Dates: start: 202309
  10. CLOBAZAM [Concomitant]
     Active Substance: CLOBAZAM
     Indication: Product used for unknown indication
     Dosage: 10MG TWO TABLETS ONCE DAILY
     Route: 065
  11. CLOBAZAM [Concomitant]
     Active Substance: CLOBAZAM
     Dosage: 0.5 MILLIGRAM, BID
     Route: 065
  12. CLOBAZAM [Concomitant]
     Active Substance: CLOBAZAM
     Route: 065
  13. LORAZEPAM [Concomitant]
     Active Substance: LORAZEPAM
     Indication: Seizure
     Route: 065
  14. TEGRETOL [Concomitant]
     Active Substance: CARBAMAZEPINE
     Indication: Seizure
     Route: 065
  15. CARBATROL [Concomitant]
     Active Substance: CARBAMAZEPINE
     Indication: Seizure
     Route: 065
  16. SALICYLIC ACID [Concomitant]
     Active Substance: SALICYLIC ACID
     Indication: Product used for unknown indication
     Route: 065

REACTIONS (12)
  - Seizure cluster [Not Recovered/Not Resolved]
  - Seizure [Recovered/Resolved]
  - Product prescribing error [Recovered/Resolved]
  - Off label use [Not Recovered/Not Resolved]
  - Hand fracture [Recovering/Resolving]
  - Product dose omission in error [Recovered/Resolved]
  - Osteoporosis [Unknown]
  - Therapeutic response shortened [Recovered/Resolved]
  - Pigmentation disorder [Not Recovered/Not Resolved]
  - Incorrect dose administered [Recovered/Resolved]
  - Atonic seizures [Not Recovered/Not Resolved]
  - Rash [Recovered/Resolved]

NARRATIVE: CASE EVENT DATE: 20240601
